FAERS Safety Report 13388982 (Version 7)
Quarter: 2022Q1

REPORT INFORMATION
  Report Type: Report from Study
  Country: CN (occurrence: None)
  Receive Date: 20170330
  Receipt Date: 20220324
  Transmission Date: 20220423
  Serious: Yes (Hospitalization)
  Sender: FDA-Public Use
  Company Number: CN-ROCHE-1908254

PATIENT
  Age: 39 Year
  Sex: Female
  Weight: 52.5 kg

DRUGS (36)
  1. PERTUZUMAB [Suspect]
     Active Substance: PERTUZUMAB
     Indication: HER2 positive breast cancer
     Dosage: LOADING DOSE?DATE OF MOST RECENT DOSE PRIOR TO TO ONSET OF SERIOUS ADVERSE EVENT: 15/FEB/2017
     Route: 042
     Dates: start: 20170215
  2. TRASTUZUMAB [Suspect]
     Active Substance: TRASTUZUMAB
     Indication: HER2 positive breast cancer
     Dosage: LOADING DOSE?DATE OF MOST RECENT DOSE PRIOR TO TO ONSET OF SERIOUS ADVERSE EVENT: 15/FEB/2017
     Route: 042
     Dates: start: 20170215
  3. DOCETAXEL [Suspect]
     Active Substance: DOCETAXEL
     Indication: HER2 positive breast cancer
     Dosage: DATE OF MOST RECENT DOSE PRIOR TO ONSET OF SERIOUS ADVERSE EVENT: 15/FEB/2017
     Route: 042
     Dates: start: 20170215
  4. LIDOCAINE HYDROCHLORIDE [Concomitant]
     Active Substance: LIDOCAINE HYDROCHLORIDE
     Dates: start: 20170214, end: 20170214
  5. DEXAMETHASONE ACETATE [Concomitant]
     Active Substance: DEXAMETHASONE ACETATE
     Dates: start: 20170214
  6. DEXAMETHASONE ACETATE [Concomitant]
     Active Substance: DEXAMETHASONE ACETATE
     Dates: start: 20170316, end: 20170316
  7. DEXAMETHASONE ACETATE [Concomitant]
     Active Substance: DEXAMETHASONE ACETATE
     Dates: start: 20170426, end: 20170427
  8. LANSOPRAZOLE [Concomitant]
     Active Substance: LANSOPRAZOLE
     Dates: start: 20170215, end: 20170215
  9. LANSOPRAZOLE [Concomitant]
     Active Substance: LANSOPRAZOLE
     Dates: start: 20170216, end: 20170216
  10. LANSOPRAZOLE [Concomitant]
     Active Substance: LANSOPRAZOLE
     Dates: start: 20170316, end: 20170316
  11. GLUTATHIONE [Concomitant]
     Active Substance: GLUTATHIONE
     Dates: start: 20170316, end: 20170316
  12. GLUTATHIONE [Concomitant]
     Active Substance: GLUTATHIONE
     Dates: start: 20170215, end: 20170215
  13. GLUTATHIONE [Concomitant]
     Active Substance: GLUTATHIONE
     Dates: start: 20170216, end: 20170216
  14. GLUTATHIONE [Concomitant]
     Active Substance: GLUTATHIONE
     Dates: start: 20170309, end: 20170315
  15. GLUTATHIONE [Concomitant]
     Active Substance: GLUTATHIONE
     Dates: start: 20170427, end: 20170427
  16. ADEMETIONINE BUTANEDISULFONATE [Concomitant]
     Active Substance: ADEMETIONINE BUTANEDISULFONATE
     Dates: start: 20170215, end: 20170215
  17. ADEMETIONINE BUTANEDISULFONATE [Concomitant]
     Active Substance: ADEMETIONINE BUTANEDISULFONATE
     Dates: start: 20170216, end: 20170216
  18. ADEMETIONINE BUTANEDISULFONATE [Concomitant]
     Active Substance: ADEMETIONINE BUTANEDISULFONATE
     Dates: start: 20170316, end: 20170316
  19. ADEMETIONINE BUTANEDISULFONATE [Concomitant]
     Active Substance: ADEMETIONINE BUTANEDISULFONATE
     Dates: start: 20170427, end: 20170427
  20. DEXAMETHASONE SODIUM PHOSPHATE [Concomitant]
     Active Substance: DEXAMETHASONE SODIUM PHOSPHATE
     Dates: start: 20170215, end: 20170215
  21. DEXAMETHASONE SODIUM PHOSPHATE [Concomitant]
     Active Substance: DEXAMETHASONE SODIUM PHOSPHATE
     Dates: start: 20170316, end: 20170316
  22. GANGLIOSIDE GM1 [Concomitant]
     Active Substance: GANGLIOSIDE GM1
     Dates: start: 20170215, end: 20170215
  23. GANGLIOSIDE GM1 [Concomitant]
     Active Substance: GANGLIOSIDE GM1
     Dates: start: 20170316, end: 20170316
  24. GANGLIOSIDE GM1 [Concomitant]
     Active Substance: GANGLIOSIDE GM1
     Dates: start: 20170427, end: 20170427
  25. PALONOSETRON HYDROCHLORIDE [Concomitant]
     Active Substance: PALONOSETRON HYDROCHLORIDE
     Dates: start: 20170215, end: 20170215
  26. PALONOSETRON HYDROCHLORIDE [Concomitant]
     Active Substance: PALONOSETRON HYDROCHLORIDE
     Dates: start: 20170316, end: 20170316
  27. PALONOSETRON HYDROCHLORIDE [Concomitant]
     Active Substance: PALONOSETRON HYDROCHLORIDE
     Dates: start: 20170427, end: 20170427
  28. ONDANSETRON HYDROCHLORIDE [Concomitant]
     Active Substance: ONDANSETRON HYDROCHLORIDE
     Dates: start: 20170215
  29. ONDANSETRON HYDROCHLORIDE [Concomitant]
     Active Substance: ONDANSETRON HYDROCHLORIDE
     Dates: start: 20170316, end: 20170316
  30. ONDANSETRON HYDROCHLORIDE [Concomitant]
     Active Substance: ONDANSETRON HYDROCHLORIDE
     Dates: start: 20170215, end: 20170215
  31. PROMETHAZINE HYDROCHLORIDE [Concomitant]
     Active Substance: PROMETHAZINE HYDROCHLORIDE
     Dates: start: 20170215, end: 20170215
  32. PROMETHAZINE HYDROCHLORIDE [Concomitant]
     Active Substance: PROMETHAZINE HYDROCHLORIDE
     Dates: start: 20170316, end: 20170316
  33. PROMETHAZINE HYDROCHLORIDE [Concomitant]
     Active Substance: PROMETHAZINE HYDROCHLORIDE
     Dates: start: 20170427, end: 20170427
  34. ESOMEPRAZOLE SODIUM [Concomitant]
     Active Substance: ESOMEPRAZOLE SODIUM
     Dates: start: 20170427, end: 20170427
  35. PEGFILGRASTIM [Concomitant]
     Active Substance: PEGFILGRASTIM
  36. FILGRASTIM [Concomitant]
     Active Substance: FILGRASTIM

REACTIONS (1)
  - Liver disorder [Recovered/Resolved]

NARRATIVE: CASE EVENT DATE: 20170302
